FAERS Safety Report 4779902-2 (Version None)
Quarter: 2005Q3

REPORT INFORMATION
  Report Type: 
  Country: None (occurrence: None)
  Receive Date: 20050914
  Receipt Date: 20050510
  Transmission Date: 20060218
  Serious: Yes (Hospitalization)
  Sender: FDA-Public Use
  Company Number: 163-20785-05050182

PATIENT
  Age: 80 Year
  Sex: Male
  Weight: 103.8737 kg

DRUGS (6)
  1. THALOMID [Suspect]
     Indication: PROSTATE CANCER
     Dosage: 100 MG, ORAL
     Route: 048
     Dates: start: 20050418, end: 20050508
  2. COUMADIN [Suspect]
     Indication: PROSTATE CANCER
     Dosage: 2 MG, AT BEDTIME, ORAL
     Route: 048
     Dates: start: 20050418, end: 20050508
  3. EMCYT [Suspect]
     Indication: PROSTATE CANCER
     Dosage: 140 MG, THREE TIMES A DAY, ORAL
     Route: 048
     Dates: start: 20050418, end: 20050420
  4. TAXOTERE [Suspect]
     Indication: PROSTATE CANCER
     Dosage: 54 MG, INTRAVENOUS
     Route: 042
     Dates: start: 20050418, end: 20050418
  5. TAXOTERE [Suspect]
     Indication: PROSTATE CANCER
     Dosage: 54 MG, INTRAVENOUS
     Route: 042
     Dates: start: 20050421, end: 20050421
  6. TAXOTERE [Suspect]
     Indication: PROSTATE CANCER
     Dosage: 54 MG, INTRAVENOUS
     Route: 042
     Dates: start: 20050502, end: 20050502

REACTIONS (8)
  - ABDOMINAL PAIN [None]
  - CHILLS [None]
  - EPISTAXIS [None]
  - INTERNATIONAL NORMALISED RATIO INCREASED [None]
  - LUNG INFILTRATION [None]
  - NAUSEA [None]
  - RECTAL HAEMORRHAGE [None]
  - VOMITING [None]
